FAERS Safety Report 15769262 (Version 11)
Quarter: 2021Q2

REPORT INFORMATION
  Report Type: Report from Study
  Country: US (occurrence: US)
  Receive Date: 20181228
  Receipt Date: 20210511
  Transmission Date: 20210716
  Serious: Yes (Other)
  Sender: FDA-Public Use
  Company Number: US-ARIAD-2017US007642

PATIENT
  Sex: Male
  Weight: 84 kg

DRUGS (5)
  1. PONATINIB [Suspect]
     Active Substance: PONATINIB
     Dosage: 15 MILLIGRAM, QD
     Route: 065
     Dates: start: 201905
  2. PONATINIB [Suspect]
     Active Substance: PONATINIB
     Dosage: 30 MILLIGRAM, QD
     Route: 048
  3. PONATINIB [Suspect]
     Active Substance: PONATINIB
     Dosage: 15 MILLIGRAM, QD
     Route: 048
     Dates: start: 20140120
  4. NORVASC [Suspect]
     Active Substance: AMLODIPINE BESYLATE
     Indication: HYPERTENSION
     Dosage: UNK
     Route: 065
  5. PONATINIB [Suspect]
     Active Substance: PONATINIB
     Indication: CHRONIC MYELOID LEUKAEMIA
     Dosage: 15 MILLIGRAM, QD
     Route: 048
     Dates: start: 2013

REACTIONS (9)
  - Neuropathy peripheral [Unknown]
  - Fatigue [Unknown]
  - Blood pressure increased [Unknown]
  - Coronary artery occlusion [Unknown]
  - Balance disorder [Unknown]
  - Hair colour changes [Unknown]
  - Hypoacusis [Unknown]
  - IIIrd nerve paralysis [Not Recovered/Not Resolved]
  - Eye inflammation [Not Recovered/Not Resolved]
